FAERS Safety Report 6554959-7 (Version None)
Quarter: 2010Q1

REPORT INFORMATION
  Report Type: 
  Country: None (occurrence: None)
  Receive Date: 20100126
  Receipt Date: 20100126
  Transmission Date: 20100710
  Serious: Yes (Life-Threatening)
  Sender: FDA-Public Use
  Company Number: None

PATIENT
  Sex: Male
  Weight: 90.7194 kg

DRUGS (2)
  1. TRAMADOL HCL [Suspect]
     Indication: PAIN
     Dosage: 50MG BID PRN PO
     Route: 048
  2. METOPROLOL 50MG GENEVA [Suspect]
     Indication: ATRIAL FIBRILLATION
     Dosage: 50MG BID PO
     Route: 048

REACTIONS (3)
  - HEART RATE DECREASED [None]
  - TABLET ISSUE [None]
  - WRONG DRUG ADMINISTERED [None]
